FAERS Safety Report 5162391-6 (Version None)
Quarter: 2006Q4

REPORT INFORMATION
  Report Type: 
  Country: None (occurrence: None)
  Receive Date: 20061129
  Receipt Date: 20061129
  Transmission Date: 20070319
  Serious: Yes (Other)
  Sender: FDA-Public Use
  Company Number: None

PATIENT
  Age: 56 Year
  Sex: Male
  Weight: 107.5025 kg

DRUGS (2)
  1. CADUET [Suspect]
     Indication: HYPERLIPIDAEMIA
     Dates: start: 20060201, end: 20060601
  2. CADUET [Suspect]
     Indication: HYPERTENSION
     Dates: start: 20060201, end: 20060601

REACTIONS (2)
  - HYPOTENSION [None]
  - LIVER FUNCTION TEST ABNORMAL [None]
